FAERS Safety Report 9352904 (Version 1)
Quarter: 2013Q2

REPORT INFORMATION
  Report Type: Spontaneous
  Country: US (occurrence: None)
  Receive Date: 20130614
  Receipt Date: 20130614
  Transmission Date: 20140414
  Serious: No
  Sender: FDA-Public Use
  Company Number: None

PATIENT
  Age: 6 Year
  Sex: Female
  Weight: 22.23 kg

DRUGS (1)
  1. METHYLPHENIDATE [Suspect]
     Indication: ATTENTION DEFICIT/HYPERACTIVITY DISORDER
     Dosage: 1 TABLET EVERY MORNING PO
     Route: 048
     Dates: start: 20130412, end: 20130511

REACTIONS (6)
  - Drug ineffective [None]
  - Product quality issue [None]
  - Product substitution issue [None]
  - Product size issue [None]
  - Impulsive behaviour [None]
  - Abnormal behaviour [None]
